FAERS Safety Report 12349521 (Version 1)
Quarter: 2016Q2

REPORT INFORMATION
  Report Type: Spontaneous
  Country: US (occurrence: US)
  Receive Date: 20160510
  Receipt Date: 20160510
  Transmission Date: 20160815
  Serious: No
  Sender: FDA-Public Use
  Company Number: US-ELI_LILLY_AND_COMPANY-US201604005008

PATIENT
  Sex: Female

DRUGS (3)
  1. MIRAPEX [Concomitant]
     Active Substance: PRAMIPEXOLE DIHYDROCHLORIDE
     Indication: RESTLESS LEGS SYNDROME
  2. FORTEO [Suspect]
     Active Substance: TERIPARATIDE
     Indication: FRACTURED SACRUM
     Dosage: UNK
     Route: 065
     Dates: start: 201404
  3. FORTEO [Suspect]
     Active Substance: TERIPARATIDE
     Indication: PUBIS FRACTURE

REACTIONS (5)
  - Myalgia [Unknown]
  - Osteoarthritis [Unknown]
  - Parkinson^s disease [Unknown]
  - Arthralgia [Unknown]
  - Off label use [Unknown]
